FAERS Safety Report 21445370 (Version 1)
Quarter: 2022Q4

REPORT INFORMATION
  Report Type: Spontaneous
  Country: US (occurrence: None)
  Receive Date: 20221011
  Receipt Date: 20221011
  Transmission Date: 20230113
  Serious: Yes (unspecified)
  Sender: FDA-Public Use
  Company Number: None

PATIENT
  Age: 30 Year
  Sex: Female
  Weight: 118.84 kg

DRUGS (2)
  1. NEXPLANON [Suspect]
     Active Substance: ETONOGESTREL
     Dates: end: 20201129
  2. FERROUS SULFATE [Concomitant]

REACTIONS (2)
  - Device breakage [None]
  - Menometrorrhagia [None]

NARRATIVE: CASE EVENT DATE: 20221011
